FAERS Safety Report 10025167 (Version 5)
Quarter: 2015Q2

REPORT INFORMATION
  Report Type: Spontaneous
  Country: US (occurrence: US)
  Receive Date: 20140320
  Receipt Date: 20150616
  Transmission Date: 20150821
  Serious: Yes (Hospitalization, Other)
  Sender: FDA-Public Use
  Company Number: US-SANOFI-AVENTIS-2012SA041908

PATIENT
  Age: 53 Year
  Sex: Female

DRUGS (10)
  1. IBUPROFEN. [Concomitant]
     Active Substance: IBUPROFEN
     Indication: HEADACHE
  2. LOVENOX [Concomitant]
     Active Substance: ENOXAPARIN SODIUM
  3. ACCUPRIL [Concomitant]
     Active Substance: QUINAPRIL HYDROCHLORIDE
  4. PREDNISONE. [Concomitant]
     Active Substance: PREDNISONE
     Indication: UPPER RESPIRATORY TRACT INFECTION
  5. GLUCOTROL [Concomitant]
     Active Substance: GLIPIZIDE
  6. PLAVIX [Suspect]
     Active Substance: CLOPIDOGREL BISULFATE
     Indication: CAROTID ARTERY DISEASE
     Route: 048
     Dates: start: 20040824, end: 20080403
  7. GLUCOPHAGE [Concomitant]
     Active Substance: METFORMIN HYDROCHLORIDE
  8. LIPITOR [Concomitant]
     Active Substance: ATORVASTATIN CALCIUM
  9. ASPIRIN. [Concomitant]
     Active Substance: ASPIRIN
     Dates: end: 20080403
  10. PREDNISONE. [Concomitant]
     Active Substance: PREDNISONE
     Indication: INFLUENZA

REACTIONS (8)
  - Gastric ulcer [Unknown]
  - Asthenia [Unknown]
  - Multiple injuries [Unknown]
  - Myocardial infarction [Unknown]
  - Anaemia [Unknown]
  - Melaena [Unknown]
  - Gastrointestinal haemorrhage [Recovered/Resolved]
  - Dizziness [Unknown]

NARRATIVE: CASE EVENT DATE: 20080403
